FAERS Safety Report 26149699 (Version 1)
Quarter: 2025Q4

REPORT INFORMATION
  Report Type: Spontaneous
  Country: US (occurrence: None)
  Receive Date: 20251211
  Receipt Date: 20251211
  Transmission Date: 20260117
  Serious: Yes (Other)
  Sender: FDA-CTU
  Company Number: None

PATIENT
  Age: 60 Year
  Sex: Female

DRUGS (1)
  1. BRAFTOVI [Suspect]
     Active Substance: ENCORAFENIB
     Indication: Colon cancer
     Dosage: OTHER QUANTITY : 4 CAPSULES (300MG);?FREQUENCY : DAILY;
     Route: 048

REACTIONS (4)
  - Pain [None]
  - Diarrhoea [None]
  - Skin fissures [None]
  - Weight decreased [None]
